FAERS Safety Report 10095004 (Version 2)
Quarter: 2014Q2

REPORT INFORMATION
  Report Type: Spontaneous
  Country: US (occurrence: US)
  Receive Date: 20140422
  Receipt Date: 20140514
  Transmission Date: 20141212
  Serious: No
  Sender: FDA-Public Use
  Company Number: US-BAYER-2014-058409

PATIENT
  Age: 70 Year
  Sex: Female
  Weight: 60 kg

DRUGS (4)
  1. ALEVE TABLET [Suspect]
     Indication: TENDONITIS
     Dosage: 1 DF, BID
     Route: 048
     Dates: start: 20140415, end: 20140417
  2. ALEVE TABLET [Suspect]
     Indication: PAIN
  3. BAYER GENUINE ASPIRIN ORIGINAL STRENGTH [Suspect]
  4. LIPITOR [Concomitant]
     Dosage: UNK

REACTIONS (6)
  - Rash [Recovered/Resolved]
  - Nausea [Recovered/Resolved]
  - Intentional product misuse [None]
  - Dysgeusia [Recovered/Resolved]
  - Drug hypersensitivity [None]
  - Abdominal pain upper [None]
